FAERS Safety Report 25954427 (Version 1)
Quarter: 2025Q4

REPORT INFORMATION
  Report Type: Spontaneous
  Country: JP (occurrence: JP)
  Receive Date: 20251023
  Receipt Date: 20251023
  Transmission Date: 20260117
  Serious: Yes (Other)
  Sender: TAKEDA
  Company Number: JP-TAKEDA-2025TJP010567

PATIENT
  Sex: Male

DRUGS (1)
  1. FRUZAQLA [Suspect]
     Active Substance: FRUQUINTINIB
     Indication: Colorectal cancer
     Dosage: 5 MILLIGRAM, QD
     Dates: start: 20250801, end: 20251001

REACTIONS (1)
  - Metastases to pancreas [Not Recovered/Not Resolved]

NARRATIVE: CASE EVENT DATE: 20250917
